FAERS Safety Report 4539308-8 (Version None)
Quarter: 2004Q4

REPORT INFORMATION
  Report Type: 
  Country: None (occurrence: None)
  Receive Date: 20041222
  Receipt Date: 20041213
  Transmission Date: 20050328
  Serious: Yes (Hospitalization)
  Sender: FDA-Public Use
  Company Number: 2004112645

PATIENT
  Age: 44 Year
  Sex: Female
  Weight: 43 kg

DRUGS (4)
  1. ADRIACIN (DOXORUBICIN HYDROCHLORIDE) [Suspect]
     Indication: BREAST CANCER
     Dosage: 75 MG (75 MG, ONCE), INTRAVENOUS
     Route: 042
     Dates: start: 20040901, end: 20040901
  2. CYCLOPHOSPHAMIDE [Suspect]
     Indication: BREAST CANCER
     Dosage: 750 MG (750 MG, ONCE), INTRAVENOUS
     Route: 042
     Dates: start: 20040901, end: 20040901
  3. DEXAMETHASONE [Concomitant]
  4. METOCLOPRAMIDE [Concomitant]

REACTIONS (3)
  - INTESTINAL ISCHAEMIA [None]
  - MELAENA [None]
  - WHITE BLOOD CELL COUNT DECREASED [None]
